FAERS Safety Report 9560259 (Version 1)
Quarter: 2013Q3

REPORT INFORMATION
  Report Type: Spontaneous
  Country: MX (occurrence: MX)
  Receive Date: 20130927
  Receipt Date: 20130927
  Transmission Date: 20140515
  Serious: Yes (Death)
  Sender: FDA-Public Use
  Company Number: MX-ELI_LILLY_AND_COMPANY-MX201309006910

PATIENT
  Age: 65 Year
  Sex: Female

DRUGS (1)
  1. SYMBYAX [Suspect]
     Dosage: 1 DF, UNKNOWN

REACTIONS (1)
  - Death [Fatal]
